FAERS Safety Report 12300235 (Version 2)
Quarter: 2016Q2

REPORT INFORMATION
  Report Type: Spontaneous
  Country: GB (occurrence: GB)
  Receive Date: 20160425
  Receipt Date: 20160527
  Transmission Date: 20160815
  Serious: Yes (Life-Threatening, Hospitalization, Other)
  Sender: FDA-Public Use
  Company Number: GB-PFIZER INC-2016214805

PATIENT
  Age: 71 Year
  Sex: Female
  Weight: 67.2 kg

DRUGS (1)
  1. CRIZOTINIB [Suspect]
     Active Substance: CRIZOTINIB
     Indication: LUNG ADENOCARCINOMA
     Dosage: 250 MG, 2X/DAY (TWICE DAILY)
     Route: 048
     Dates: start: 20150904, end: 20160408

REACTIONS (4)
  - Cerebrovascular accident [Not Recovered/Not Resolved]
  - Bradycardia [Unknown]
  - Atrial fibrillation [Not Recovered/Not Resolved]
  - Muscular weakness [Unknown]

NARRATIVE: CASE EVENT DATE: 201604
